FAERS Safety Report 5342575-4 (Version None)
Quarter: 2007Q2

REPORT INFORMATION
  Report Type: 
  Country: None (occurrence: None)
  Receive Date: 20070601
  Receipt Date: 20070104
  Transmission Date: 20071010
  Serious: No
  Sender: FDA-Public Use
  Company Number: A0634108A

PATIENT
  Age: 14 Month
  Sex: Male

DRUGS (2)
  1. AUGMENTIN '125' [Suspect]
     Indication: EAR INFECTION
     Route: 048
     Dates: start: 20070103
  2. NO CONCURRENT MEDICATION [Concomitant]

REACTIONS (2)
  - CRYING [None]
  - VOMITING [None]
